FAERS Safety Report 9951262 (Version 1)
Quarter: 2014Q1

REPORT INFORMATION
  Report Type: Report from Study
  Country: US (occurrence: US)
  Receive Date: 20140304
  Receipt Date: 20140304
  Transmission Date: 20141002
  Serious: No
  Sender: FDA-Public Use
  Company Number: US-ABBVIE-13P-163-1070482-00

PATIENT
  Age: 36 Year
  Sex: Male

DRUGS (12)
  1. HUMIRA [Suspect]
     Indication: COLITIS ULCERATIVE
     Dates: start: 20130105, end: 20130316
  2. XANAX [Concomitant]
     Indication: ANXIETY
  3. VICOPROFEN [Concomitant]
     Indication: PAIN
     Dosage: 7.5/200MG, EVERY 6 HOURS, AS NEEDED
  4. VICOPROFEN [Concomitant]
     Dosage: 10MG/200MG, EVERY 6 HOURS, ONCE DAILY
  5. ELAVIL [Concomitant]
     Indication: POST HERPETIC NEURALGIA
  6. LEXAPRO [Concomitant]
     Indication: ANXIETY
  7. HYDROCORTISONE [Concomitant]
     Indication: PROCTITIS
     Dosage: DAILY
  8. CANASA [Concomitant]
     Indication: PROCTITIS
  9. MULTIVITAMINS [Concomitant]
     Indication: PRODUCT USED FOR UNKNOWN INDICATION
     Dosage: DAILY
  10. VITAMIN C [Concomitant]
     Indication: PRODUCT USED FOR UNKNOWN INDICATION
  11. LIDODERM PATCHES 5% LIDOCAINE [Concomitant]
     Indication: POST HERPETIC NEURALGIA
  12. LEVSIN [Concomitant]
     Indication: MUSCLE SPASMS

REACTIONS (7)
  - Weight increased [Not Recovered/Not Resolved]
  - Fatigue [Not Recovered/Not Resolved]
  - Dry skin [Not Recovered/Not Resolved]
  - Sinusitis [Not Recovered/Not Resolved]
  - Pain in extremity [Not Recovered/Not Resolved]
  - Nausea [Not Recovered/Not Resolved]
  - Headache [Not Recovered/Not Resolved]
